FAERS Safety Report 4299155-1 (Version None)
Quarter: 2004Q1

REPORT INFORMATION
  Report Type: 
  Country: None (occurrence: None)
  Receive Date: 20040217
  Receipt Date: 20040204
  Transmission Date: 20041129
  Serious: Yes (Hospitalization)
  Sender: FDA-Public Use
  Company Number: MK200402-0102-1

PATIENT
  Age: 36 Year
  Sex: Female

DRUGS (2)
  1. ANAFRANIL [Suspect]
     Indication: OVERDOSE
     Dosage: 1500MG, ONE TIME
     Dates: start: 20031206, end: 20031206
  2. ZYPREXA [Suspect]
     Dosage: 200MG, ONE TIME
     Dates: start: 20031206, end: 20031206

REACTIONS (8)
  - AGITATION [None]
  - ALANINE AMINOTRANSFERASE DECREASED [None]
  - BLOOD GLUCOSE INCREASED [None]
  - CONFUSIONAL STATE [None]
  - HAEMOGLOBIN DECREASED [None]
  - INTENTIONAL OVERDOSE [None]
  - MULTIPLE DRUG OVERDOSE [None]
  - SOMNOLENCE [None]
